FAERS Safety Report 8917009 (Version 2)
Quarter: 2013Q1

REPORT INFORMATION
  Report Type: Spontaneous
  Country: US (occurrence: US)
  Receive Date: 20121120
  Receipt Date: 20130310
  Transmission Date: 20140127
  Serious: No
  Sender: FDA-Public Use
  Company Number: US-009507513-1211USA002436

PATIENT
  Age: 54 Year
  Sex: Female

DRUGS (1)
  1. AZASITE [Suspect]
     Indication: CONJUNCTIVITIS
     Dosage: ONE DROP IN EACH EYE TWICE A DAY FOR TWO DAYS, ONE DROP IN EACH EYE ONCE A DAY FOR 5 DAYS
     Route: 047
     Dates: start: 20121102, end: 20121117

REACTIONS (3)
  - Drug dose omission [Unknown]
  - Product packaging quantity issue [Unknown]
  - No adverse event [Unknown]
